FAERS Safety Report 7423453-3 (Version None)
Quarter: 2011Q1

REPORT INFORMATION
  Report Type: 
  Country: None (occurrence: None)
  Receive Date: 20110302
  Receipt Date: 20110103
  Transmission Date: 20110831
  Serious: No
  Sender: FDA-Public Use
  Company Number: 024785

PATIENT
  Sex: Female
  Weight: 72.6 kg

DRUGS (3)
  1. CIMZIA [Suspect]
     Indication: CROHN'S DISEASE
     Dosage: (TWO SHOTS, MONTHLY SUBCUTANEOUS)
     Route: 058
     Dates: start: 20101130
  2. METHOTREXATE [Concomitant]
  3. PREDNISONE [Concomitant]

REACTIONS (1)
  - ARTHRALGIA [None]
